FAERS Safety Report 21379975 (Version 1)
Quarter: 2022Q3

REPORT INFORMATION
  Report Type: Spontaneous
  Country: GB (occurrence: GB)
  Receive Date: 20220927
  Receipt Date: 20220927
  Transmission Date: 20221027
  Serious: Yes (Other)
  Sender: FDA-Public Use
  Company Number: GB-ROCHE-3177878

PATIENT
  Sex: Male

DRUGS (15)
  1. BENDAMUSTINE [Suspect]
     Active Substance: BENDAMUSTINE
     Indication: Product used for unknown indication
     Route: 065
  2. CARBOPLATIN [Suspect]
     Active Substance: CARBOPLATIN
     Indication: Diffuse large B-cell lymphoma
     Dosage: THERAPY DURATION : 62 DAYS
     Route: 065
     Dates: start: 20210801, end: 20211001
  3. VINCRISTINE [Suspect]
     Active Substance: VINCRISTINE
     Indication: Diffuse large B-cell lymphoma
     Dosage: THERAPY DURATION : 62 DAYS
     Route: 065
     Dates: start: 20210401, end: 20210601
  4. VINCRISTINE SULFATE [Suspect]
     Active Substance: VINCRISTINE SULFATE
     Indication: Diffuse large B-cell lymphoma
     Dosage: THERAPY DURATION : 32 DAYS
     Route: 065
     Dates: start: 20210301, end: 20210401
  5. DOXORUBICIN HYDROCHLORIDE [Suspect]
     Active Substance: DOXORUBICIN HYDROCHLORIDE
     Indication: Diffuse large B-cell lymphoma
     Dosage: THERAPY DURATION : 32 DAYS
     Route: 065
     Dates: start: 20210301, end: 20210401
  6. DOXORUBICIN [Suspect]
     Active Substance: DOXORUBICIN
     Indication: Diffuse large B-cell lymphoma
     Dosage: THERAPY DURATION : 62 DAYS
     Route: 065
     Dates: start: 20210401, end: 20210601
  7. PREDNISOLONE [Suspect]
     Active Substance: PREDNISOLONE
     Indication: Diffuse large B-cell lymphoma
     Dosage: THERAPY DURATION : 62 DAYS
     Route: 065
     Dates: start: 20210401, end: 20210601
  8. ETOPOSIDE [Suspect]
     Active Substance: ETOPOSIDE
     Indication: Diffuse large B-cell lymphoma
     Dosage: THERAPY DURATION : 62 DAYS
     Route: 065
     Dates: start: 20210401, end: 20210601
  9. CYCLOPHOSPHAMIDE [Suspect]
     Active Substance: CYCLOPHOSPHAMIDE
     Indication: Diffuse large B-cell lymphoma
     Dosage: THERAPY DURATION : 62 DAYS
     Route: 065
     Dates: start: 20210401, end: 20210601
  10. CYCLOPHOSPHAMIDE [Suspect]
     Active Substance: CYCLOPHOSPHAMIDE
     Indication: Diffuse large B-cell lymphoma
     Dosage: THERAPY DURATION : 32 DAYS
     Route: 065
     Dates: start: 20210301, end: 20210401
  11. IFOSFAMIDE [Suspect]
     Active Substance: IFOSFAMIDE
     Indication: Diffuse large B-cell lymphoma
     Dosage: THERAPY DURATION : 62 DAYS
     Route: 065
     Dates: start: 20210801, end: 20211001
  12. POLIVY [Suspect]
     Active Substance: POLATUZUMAB VEDOTIN-PIIQ
     Indication: Product used for unknown indication
     Route: 065
  13. RITUXIMAB [Suspect]
     Active Substance: RITUXIMAB
     Indication: Diffuse large B-cell lymphoma
     Dosage: THERAPY DURATION : 32 DAYS
     Route: 065
     Dates: start: 20210301, end: 20210401
  14. RITUXIMAB [Suspect]
     Active Substance: RITUXIMAB
     Indication: Product used for unknown indication
     Route: 065
  15. PREDNISONE [Suspect]
     Active Substance: PREDNISONE
     Indication: Diffuse large B-cell lymphoma
     Dosage: THERAPY DURATION : 32 DAYS
     Route: 065
     Dates: start: 20210301, end: 20210401

REACTIONS (3)
  - Malignant neoplasm progression [Unknown]
  - Off label use [Unknown]
  - Product use issue [Unknown]
